FAERS Safety Report 7518418-7 (Version None)
Quarter: 2011Q2

REPORT INFORMATION
  Report Type: 
  Country: None (occurrence: None)
  Receive Date: 20110601
  Receipt Date: 20110601
  Transmission Date: 20111010
  Serious: Yes (Hospitalization)
  Sender: FDA-Public Use
  Company Number: None

PATIENT
  Age: 20 Year
  Sex: Female
  Weight: 60.3284 kg

DRUGS (2)
  1. GAMMAGARD [Suspect]
     Indication: MYASTHENIA GRAVIS
     Dosage: 30GM IV DAILY
     Route: 042
     Dates: start: 20110524
  2. GAMMAGARD [Suspect]
     Dates: start: 20110525

REACTIONS (1)
  - MENINGITIS [None]
